FAERS Safety Report 5241883-5 (Version None)
Quarter: 2007Q1

REPORT INFORMATION
  Report Type: 
  Country: None (occurrence: None)
  Receive Date: 20070220
  Receipt Date: 20070209
  Transmission Date: 20070707
  Serious: Yes (Other)
  Sender: FDA-Public Use
  Company Number: US-PFIZER INC-2007011964

PATIENT
  Sex: Female
  Weight: 86.2 kg

DRUGS (2)
  1. LYRICA [Suspect]
     Indication: BONE PAIN
     Dates: start: 20061201, end: 20061201
  2. ZIAC [Concomitant]

REACTIONS (8)
  - CONTUSION [None]
  - COORDINATION ABNORMAL [None]
  - DYSPNOEA [None]
  - FALL [None]
  - HEADACHE [None]
  - LOSS OF CONTROL OF LEGS [None]
  - MUSCULAR WEAKNESS [None]
  - SYNCOPE [None]
